FAERS Safety Report 7660021-2 (Version None)
Quarter: 2011Q3

REPORT INFORMATION
  Report Type: 
  Country: None (occurrence: None)
  Receive Date: 20110805
  Receipt Date: 20110727
  Transmission Date: 20111222
  Serious: Yes (Other)
  Sender: FDA-Public Use
  Company Number: JP-JNJFOC-20110800395

PATIENT
  Age: 5 Decade
  Sex: Male

DRUGS (3)
  1. PREDNISOLONE [Suspect]
     Indication: COLITIS ULCERATIVE
     Route: 048
     Dates: start: 20110201
  2. REMICADE [Suspect]
     Indication: COLITIS ULCERATIVE
     Route: 042
     Dates: start: 20110301
  3. 5-AMINOSALICYLIC ACID [Concomitant]
     Indication: COLITIS ULCERATIVE
     Route: 048
     Dates: start: 20110201

REACTIONS (2)
  - AMOEBIC COLITIS [None]
  - HEPATIC AMOEBIASIS [None]
